FAERS Safety Report 5193223-8 (Version None)
Quarter: 2006Q4

REPORT INFORMATION
  Report Type: 
  Country: None (occurrence: None)
  Receive Date: 20061228
  Receipt Date: 20060714
  Transmission Date: 20070319
  Serious: No
  Sender: FDA-Public Use
  Company Number: US-GLAXOSMITHKLINE-A0612303A

PATIENT
  Sex: Male

DRUGS (2)
  1. AVODART [Suspect]
     Indication: BENIGN PROSTATIC HYPERPLASIA
     Dosage: 5MGM PER DAY
     Route: 048
     Dates: start: 20050101
  2. VITAMINS [Concomitant]

REACTIONS (8)
  - CONJUNCTIVITIS [None]
  - CONJUNCTIVITIS ALLERGIC [None]
  - EYE DISORDER [None]
  - EYE INFLAMMATION [None]
  - EYE PRURITUS [None]
  - INFLAMMATION [None]
  - LACRIMATION INCREASED [None]
  - OCULAR VASCULAR DISORDER [None]
